FAERS Safety Report 5720726-7 (Version None)
Quarter: 2008Q2

REPORT INFORMATION
  Report Type: 
  Country: None (occurrence: None)
  Receive Date: 20080429
  Receipt Date: 20080424
  Transmission Date: 20081010
  Serious: Yes (Hospitalization)
  Sender: FDA-Public Use
  Company Number: FR-WYE-G01330208

PATIENT
  Sex: Female
  Weight: 32 kg

DRUGS (1)
  1. ADVIL [Suspect]
     Indication: IMPETIGO
     Route: 048
     Dates: start: 20080314, end: 20080316

REACTIONS (2)
  - CHONDRITIS [None]
  - ERYSIPELAS [None]
